FAERS Safety Report 8290128-0 (Version None)
Quarter: 2012Q2

REPORT INFORMATION
  Report Type: 
  Country: None (occurrence: None)
  Receive Date: 20120417
  Receipt Date: 20120412
  Transmission Date: 20120825
  Serious: Yes (Life-Threatening, Hospitalization, Other)
  Sender: FDA-Public Use
  Company Number: PHHY2011JP91480

PATIENT
  Sex: Male
  Weight: 52 kg

DRUGS (40)
  1. ASPIRIN [Concomitant]
     Dosage: 100 MG,
     Dates: end: 20111020
  2. NIRENA [Concomitant]
     Dosage: 20 MG, UNK
     Route: 048
     Dates: start: 20110928
  3. NIRENA [Concomitant]
     Dosage: 20 MG, UNK
     Route: 048
  4. FUROSEMIDE [Concomitant]
     Dosage: UNK UKN, UNK
     Route: 041
     Dates: start: 20110926
  5. ASPIRIN [Concomitant]
     Dosage: 100 MG,
     Route: 048
  6. NIRENA [Concomitant]
     Dosage: 30 MG, UNK
     Route: 048
  7. AZUNOL [Concomitant]
     Dosage: UNK UKN, UNK
     Dates: start: 20111017
  8. SOLITA-T3 INJECTION [Concomitant]
     Dosage: 1000 ML, UNK
     Route: 041
     Dates: start: 20110926
  9. SODIUM CHLORIDE [Concomitant]
     Dosage: 200 ML, UNK
     Route: 041
  10. VEEN-F [Concomitant]
     Dosage: 500 ML, UNK
     Route: 041
  11. AFINITOR [Suspect]
     Indication: METASTATIC RENAL CELL CARCINOMA
     Dosage: 5 MG, DAILY
     Route: 048
     Dates: start: 20110616, end: 20110728
  12. TAMSULOSIN HCL [Concomitant]
     Dosage: 2 MG,
     Route: 048
     Dates: start: 20110729, end: 20111020
  13. VEEN-F [Concomitant]
     Dosage: 1000 ML, UNK
     Route: 041
  14. ADALAT [Concomitant]
     Dosage: 20 MG,
     Route: 048
     Dates: start: 20110728
  15. ASPIRIN [Concomitant]
     Dosage: 150 MG,
     Route: 048
  16. MYSER [Concomitant]
     Dosage: UNK UKN, UNK
     Route: 048
     Dates: start: 20110924
  17. TELEMINSOFT [Concomitant]
     Dosage: UNK UKN, UNK
     Dates: start: 20110926
  18. SODIUM CHLORIDE [Concomitant]
     Dosage: 100 ML, UNK
     Route: 041
     Dates: start: 20110926
  19. ALBUMIN (HUMAN) [Concomitant]
     Dosage: 50 ML, UNK
     Route: 041
     Dates: start: 20111004
  20. AFINITOR [Suspect]
     Dosage: 5 MG, DAILY
     Route: 048
     Dates: start: 20110803
  21. VITAMIN B12 [Concomitant]
     Dosage: 2000 UG, UNK
     Route: 048
  22. HALCION [Concomitant]
     Dosage: 0.25 MG, UNK
     Route: 048
     Dates: start: 20110928
  23. SOLITA-T3 INJECTION [Concomitant]
     Dosage: 1500 ML, UNK
     Route: 041
  24. VEEN-F [Concomitant]
     Dosage: 500 ML, UNK
     Route: 041
  25. HALTHROW OD [Concomitant]
     Dosage: 0.2 MG,
     Route: 048
     Dates: end: 20110728
  26. SORAFENIB TOSILATE [Concomitant]
     Indication: METASTATIC RENAL CELL CARCINOMA
     Dosage: 800 MG, UNK
     Route: 048
     Dates: start: 20100810, end: 20110601
  27. LOSARTAN POTASSIUM AND HYDROCHLOROTHIAZIDE [Concomitant]
     Dosage: 1 DF,
     Route: 048
     Dates: start: 20110729, end: 20111020
  28. VITAMIN B12 [Concomitant]
     Dosage: 1500 UG, UNK
     Route: 048
     Dates: start: 20110928
  29. VITAMIN B12 [Concomitant]
     Dosage: 1500 UG, UNK
     Route: 048
  30. SOLITA-T3 INJECTION [Concomitant]
     Dosage: 1000 ML, UNK
     Route: 041
  31. SOLITA-T3 INJECTION [Concomitant]
     Dosage: 500 ML, UNK
     Route: 041
  32. PIPEYUNCIN [Concomitant]
     Dosage: 2 G, UNK
     Route: 041
  33. WYSTAL [Concomitant]
     Dosage: 2 G, UNK
     Route: 041
     Dates: start: 20110929
  34. AFINITOR [Suspect]
     Dosage: 5 MG, DAILY
     Route: 048
     Dates: start: 20111012, end: 20111020
  35. HIRUDOID [Concomitant]
     Dosage: UNK UKN, UNK
     Dates: start: 20110924
  36. JUZENTAIHOTO [Concomitant]
     Dosage: 7.5 MG, UNK
     Route: 048
     Dates: start: 20110928
  37. MUCOSTA [Concomitant]
     Dosage: 100 MG, UNK
     Dates: start: 20110928
  38. PIPEYUNCIN [Concomitant]
     Dosage: 1 G, UNK
     Route: 041
     Dates: start: 20110926
  39. VEEN-F [Concomitant]
     Dosage: 500 ML, UNK
     Route: 041
     Dates: start: 20111004
  40. VEEN-F [Concomitant]
     Dosage: 1000 ML, UNK
     Route: 040

REACTIONS (9)
  - PLEURAL EFFUSION [None]
  - BLOOD CREATININE INCREASED [None]
  - C-REACTIVE PROTEIN INCREASED [None]
  - HAEMOGLOBIN DECREASED [None]
  - BLOOD UREA INCREASED [None]
  - RENAL FAILURE [None]
  - EOSINOPHIL COUNT INCREASED [None]
  - HAEMATOCRIT DECREASED [None]
  - LYMPHOCYTE COUNT DECREASED [None]
